FAERS Safety Report 8844292 (Version 2)
Quarter: 2012Q4

REPORT INFORMATION
  Report Type: 
  Country: IT (occurrence: IT)
  Receive Date: 20121017
  Receipt Date: 20121025
  Transmission Date: 20130627
  Serious: No
  Sender: FDA-Public Use
  Company Number: IT-MERCK-1210ITA006081

PATIENT
  Age: 70 Year
  Sex: Male

DRUGS (3)
  1. JANUMET [Suspect]
     Indication: TYPE 2 DIABETES MELLITUS
     Dosage: 100 mg + 2000 mg, bid
     Route: 048
     Dates: start: 20121005, end: 20121007
  2. JANUMET [Suspect]
     Indication: HYPOGLYCAEMIA
     Dosage: UNK
     Route: 048
     Dates: start: 201210, end: 20121012
  3. GLICLAZIDE [Concomitant]
     Dosage: UNK
     Route: 048
     Dates: start: 2009

REACTIONS (6)
  - Tremor [Unknown]
  - Hyperhidrosis [Unknown]
  - Headache [Unknown]
  - Malaise [Recovering/Resolving]
  - Dizziness [Recovering/Resolving]
  - Headache [Recovering/Resolving]
